FAERS Safety Report 15680413 (Version 1)
Quarter: 2018Q4

REPORT INFORMATION
  Report Type: Spontaneous
  Country: US (occurrence: US)
  Receive Date: 20181202
  Receipt Date: 20181202
  Transmission Date: 20190205
  Serious: Yes (Disabling)
  Sender: FDA-Public Use
  Company Number: None

PATIENT
  Age: 55 Year
  Sex: Female
  Weight: 83.25 kg

DRUGS (9)
  1. MAGNESIUM [Concomitant]
     Active Substance: MAGNESIUM
  2. GADOLINIUM [Suspect]
     Active Substance: GADOLINIUM
     Indication: NUCLEAR MAGNETIC RESONANCE IMAGING
     Dosage: ?          OTHER FREQUENCY:DURING MRI;?
     Route: 042
     Dates: start: 20081201, end: 20180118
  3. SYNTHROID [Concomitant]
     Active Substance: LEVOTHYROXINE SODIUM
  4. PRISTIQ EXTENDED-RELEASE [Concomitant]
     Active Substance: DESVENLAFAXINE SUCCINATE
  5. ROVOSTATIN [Concomitant]
     Active Substance: ROSUVASTATIN
  6. TYSABRI [Concomitant]
     Active Substance: NATALIZUMAB
  7. VITAMIN D3 [Concomitant]
     Active Substance: CHOLECALCIFEROL
  8. ABILIFY [Concomitant]
     Active Substance: ARIPIPRAZOLE
  9. AMPYRA [Concomitant]
     Active Substance: DALFAMPRIDINE

REACTIONS (6)
  - Contrast media toxicity [None]
  - Bone pain [None]
  - Hypoaesthesia [None]
  - Myalgia [None]
  - Feeling abnormal [None]
  - Dental caries [None]

NARRATIVE: CASE EVENT DATE: 20150131
